FAERS Safety Report 17645061 (Version 1)
Quarter: 2020Q2

REPORT INFORMATION
  Report Type: Spontaneous
  Country: CN (occurrence: CN)
  Receive Date: 20200408
  Receipt Date: 20200408
  Transmission Date: 20200713
  Serious: Yes (Hospitalization)
  Sender: FDA-Public Use
  Company Number: CN-BAXTER-2020BAX007481

PATIENT
  Age: 7 Year
  Sex: Female
  Weight: 19.7 kg

DRUGS (9)
  1. HYCAMTIN [Suspect]
     Active Substance: TOPOTECAN HYDROCHLORIDE
     Indication: METASTASIS
     Dosage: HYCAMTIN + 0.9% NS 12  ML, DAY 1-5
     Route: 041
     Dates: start: 20200316, end: 20200320
  2. ONDANSETRON HYDROCHLORIDE. [Suspect]
     Active Substance: ONDANSETRON HYDROCHLORIDE
     Indication: ANTIEMETIC SUPPORTIVE CARE
     Dosage: ONDANSETRON HYDROCHLORIDE + 0.9% NS 25 ML, (30 MINUTES BEFORE DAILY CHEMOTHERAPY)
     Route: 041
     Dates: start: 20200316, end: 20200320
  3. ENDOXAN [Suspect]
     Active Substance: CYCLOPHOSPHAMIDE
     Indication: METASTASIS
     Dosage: ENDOXAN + 0.9% NS 48 ML, DAY 1-5
     Route: 041
     Dates: start: 20200316, end: 20200320
  4. ENDOXAN [Suspect]
     Active Substance: CYCLOPHOSPHAMIDE
     Indication: NEUROBLASTOMA
  5. 0.9% SODIUM CHLORIDE INJECTION [Suspect]
     Active Substance: SODIUM CHLORIDE
     Indication: MEDICATION DILUTION
     Dosage: ENDOXAN 200 MG+ 0.9% NS, DAY 1-5
     Route: 041
     Dates: start: 20200316, end: 20200320
  6. HYCAMTIN [Suspect]
     Active Substance: TOPOTECAN HYDROCHLORIDE
     Indication: NEUROBLASTOMA
  7. MESNA. [Suspect]
     Active Substance: MESNA
     Indication: PROPHYLAXIS
     Dosage: BEFORE AND AFTER CYCLOPHOSPHAMIDE USE
     Route: 042
     Dates: start: 20200316, end: 20200320
  8. 0.9% SODIUM CHLORIDE INJECTION [Suspect]
     Active Substance: SODIUM CHLORIDE
     Dosage: ONDANSETRON HYDROCHLORIDE 4 MG+ 0.9% NS, (30 MINUTES BEFORE DAILY CHEMOTHERAPY)
     Route: 041
     Dates: start: 20200316, end: 20200320
  9. 0.9% SODIUM CHLORIDE INJECTION [Suspect]
     Active Substance: SODIUM CHLORIDE
     Dosage: HYCAMTIN 0.6 MG+ 0.9% NS, DAY 1-5
     Route: 041
     Dates: start: 20200316, end: 20200320

REACTIONS (2)
  - Pyrexia [Recovering/Resolving]
  - Cytopenia [Recovering/Resolving]

NARRATIVE: CASE EVENT DATE: 20200327
